FAERS Safety Report 5671222-7 (Version None)
Quarter: 2008Q1

REPORT INFORMATION
  Report Type: 
  Country: None (occurrence: None)
  Receive Date: 20080313
  Receipt Date: 20080305
  Transmission Date: 20080703
  Serious: Yes (Death, Hospitalization, Other)
  Sender: FDA-Public Use
  Company Number: 163-21880-07050797

PATIENT
  Age: 85 Year
  Sex: Female
  Weight: 65.1 kg

DRUGS (9)
  1. REVLIMID [Suspect]
     Indication: MULTIPLE MYELOMA
     Dosage: 15 MG, QD, ORAL; 10 MG, ORAL; 25 MG, QD X21 DAYS, ORAL
     Route: 048
     Dates: start: 20070308, end: 20070312
  2. REVLIMID [Suspect]
     Indication: MULTIPLE MYELOMA
     Dosage: 15 MG, QD, ORAL; 10 MG, ORAL; 25 MG, QD X21 DAYS, ORAL
     Route: 048
     Dates: start: 20070405, end: 20070420
  3. REVLIMID [Suspect]
     Indication: MULTIPLE MYELOMA
     Dosage: 15 MG, QD, ORAL; 10 MG, ORAL; 25 MG, QD X21 DAYS, ORAL
     Route: 048
     Dates: start: 20070405
  4. DEXAMETHASONE TAB [Suspect]
     Indication: MULTIPLE MYELOMA
     Dosage: 40 MG, QD 1-4, 9-12, 17-20 X4CYCLES THEN DAYS 1-4, ORAL; 40 MG, DAYS 1-4 ONLY; 20 MG, DAYS 15 + 22,
     Route: 048
     Dates: start: 20070308, end: 20070311
  5. DEXAMETHASONE TAB [Suspect]
     Indication: MULTIPLE MYELOMA
     Dosage: 40 MG, QD 1-4, 9-12, 17-20 X4CYCLES THEN DAYS 1-4, ORAL; 40 MG, DAYS 1-4 ONLY; 20 MG, DAYS 15 + 22,
     Route: 048
     Dates: start: 20070405, end: 20070419
  6. DEXAMETHASONE TAB [Suspect]
     Indication: MULTIPLE MYELOMA
     Dosage: 40 MG, QD 1-4, 9-12, 17-20 X4CYCLES THEN DAYS 1-4, ORAL; 40 MG, DAYS 1-4 ONLY; 20 MG, DAYS 15 + 22,
     Route: 048
     Dates: start: 20070418
  7. COUMADIN [Concomitant]
  8. BACTRIM DS [Concomitant]
  9. ASPIRIN [Concomitant]

REACTIONS (23)
  - CONFUSIONAL STATE [None]
  - CULTURE URINE POSITIVE [None]
  - CYSTITIS [None]
  - DIVERTICULITIS [None]
  - FLUID OVERLOAD [None]
  - HAEMOGLOBIN DECREASED [None]
  - HEADACHE [None]
  - HYPOCALCAEMIA [None]
  - HYPOKALAEMIA [None]
  - HYPOTENSION [None]
  - INTERNATIONAL NORMALISED RATIO ABNORMAL [None]
  - LYMPHOPENIA [None]
  - NEUTROPENIA [None]
  - NITRITE URINE PRESENT [None]
  - OPPORTUNISTIC INFECTION [None]
  - ORAL HERPES [None]
  - PNEUMONIA [None]
  - RENAL FAILURE [None]
  - RENAL FAILURE ACUTE [None]
  - SEPSIS [None]
  - STAPHYLOCOCCAL INFECTION [None]
  - UPPER AERODIGESTIVE TRACT INFECTION [None]
  - URINARY TRACT INFECTION [None]
